FAERS Safety Report 5330331-2 (Version None)
Quarter: 2007Q2

REPORT INFORMATION
  Report Type: 
  Country: None (occurrence: None)
  Receive Date: 20070521
  Receipt Date: 20070509
  Transmission Date: 20071010
  Serious: Yes (Other)
  Sender: FDA-Public Use
  Company Number: US-PFIZER INC-2006034435

PATIENT
  Sex: Male
  Weight: 68 kg

DRUGS (1)
  1. VIAGRA [Suspect]

REACTIONS (4)
  - BLINDNESS [None]
  - CATARACT [None]
  - OPTIC ISCHAEMIC NEUROPATHY [None]
  - RETINAL VEIN OCCLUSION [None]
